FAERS Safety Report 23897589 (Version 1)
Quarter: 2024Q2

REPORT INFORMATION
  Report Type: Spontaneous
  Country: US (occurrence: None)
  Receive Date: 20240524
  Receipt Date: 20240524
  Transmission Date: 20240716
  Serious: Yes (Death)
  Sender: FDA-Public Use
  Company Number: None

PATIENT
  Age: 41 Year
  Sex: Male
  Weight: 90 kg

DRUGS (4)
  1. TIANEPTINE [Suspect]
     Active Substance: TIANEPTINE
     Indication: Substance abuse
  2. TIANEPTINE [Suspect]
     Active Substance: TIANEPTINE
  3. TIANEPTINE [Suspect]
     Active Substance: TIANEPTINE
  4. Gabapentin; [Concomitant]

REACTIONS (2)
  - Substance abuse [None]
  - Mental disorder [None]
